FAERS Safety Report 6398306-2 (Version None)
Quarter: 2009Q4

REPORT INFORMATION
  Report Type: 
  Country: None (occurrence: None)
  Receive Date: 20091013
  Receipt Date: 20091010
  Transmission Date: 20100525
  Serious: Yes (Other)
  Sender: FDA-Public Use
  Company Number: FR-WYE-G04599709

PATIENT
  Age: 36 Year
  Sex: Female

DRUGS (2)
  1. VENLAFAXINE HYDROCHLORIDE [Suspect]
     Route: 048
     Dates: start: 20091001, end: 20091010
  2. STABLON [Concomitant]
     Dosage: UNKNOWN
     Route: 048

REACTIONS (4)
  - DRUG DISPENSING ERROR [None]
  - HYPERTENSION [None]
  - INCORRECT DOSE ADMINISTERED [None]
  - PHOSPHENES [None]
